FAERS Safety Report 7913285-1 (Version None)
Quarter: 2011Q4

REPORT INFORMATION
  Report Type: 
  Country: None (occurrence: None)
  Receive Date: 20111114
  Receipt Date: 20111104
  Transmission Date: 20120403
  Serious: Yes (Death, Life-Threatening, Hospitalization)
  Sender: FDA-Public Use
  Company Number: JP-ROCHE-429979

PATIENT
  Sex: Female

DRUGS (44)
  1. MYCOPHENOLATE MOFETIL (CELLCEPT) [Suspect]
     Route: 048
     Dates: start: 20041203, end: 20041206
  2. MYCOPHENOLATE MOFETIL (CELLCEPT) [Suspect]
     Route: 048
     Dates: start: 20051031, end: 20051101
  3. MYCOPHENOLATE MOFETIL (CELLCEPT) [Suspect]
     Route: 048
     Dates: start: 20060301, end: 20060305
  4. SULFAMETHOXAZOLE AND TRIMETHOPRIM [Concomitant]
     Route: 048
  5. FUNGUARD [Concomitant]
     Dosage: STOPPED ON 6 DECEMBER 2004 AND RE-STARTED ON 15 DECEMBER 2004.
     Route: 042
     Dates: start: 20041201, end: 20041228
  6. ITRACONAZOLE [Concomitant]
     Route: 048
     Dates: start: 20041229, end: 20050124
  7. FIRSTCIN [Concomitant]
     Dates: start: 20060301, end: 20060410
  8. MYCOPHENOLATE MOFETIL (CELLCEPT) [Suspect]
     Indication: PROPHYLAXIS AGAINST TRANSPLANT REJECTION
     Route: 048
     Dates: start: 20041130, end: 20041130
  9. MYCOPHENOLATE MOFETIL (CELLCEPT) [Suspect]
     Route: 048
     Dates: start: 20050608, end: 20050712
  10. MYCOPHENOLATE MOFETIL (CELLCEPT) [Suspect]
     Route: 048
     Dates: start: 20051122, end: 20060228
  11. VINCRISTINE SULFATE [Suspect]
     Indication: PROPHYLAXIS AGAINST TRANSPLANT REJECTION
     Route: 042
  12. BASILIXIMAB [Concomitant]
     Dosage: STOPPED ON 1 DECEMBER 2004 AND RE-STARTED ON 5 DECEMBER 2004.
     Route: 042
     Dates: start: 20041201, end: 20041205
  13. FLUCONAZOLE [Concomitant]
     Route: 042
     Dates: start: 20041201, end: 20041201
  14. ATORVASTATIN CALCIUM [Concomitant]
     Route: 048
  15. MYCOPHENOLATE MOFETIL (CELLCEPT) [Suspect]
     Route: 048
     Dates: start: 20051103, end: 20051120
  16. TACROLIMUS [Suspect]
     Route: 042
     Dates: start: 20041202, end: 20041210
  17. DOXORUBICIN HCL [Suspect]
     Indication: PROPHYLAXIS AGAINST TRANSPLANT REJECTION
     Route: 042
  18. ZOVIRAX [Concomitant]
     Route: 042
     Dates: start: 20041210, end: 20041220
  19. ZOVIRAX [Concomitant]
     Dosage: STOPPED AT AN UNKNOWN TIME AND RE-STARTED ON 16 NOVEMBER 2005. STOPPED ON 5 DECEMBER 2005 AND RE-ST+
     Route: 048
     Dates: start: 20041221, end: 20060220
  20. BACTRIM [Concomitant]
     Route: 042
     Dates: start: 20041201, end: 20041221
  21. MYCOPHENOLATE MOFETIL (CELLCEPT) [Suspect]
     Route: 048
     Dates: start: 20041207, end: 20041212
  22. NICARDIPINE HYDROCHLORIDE [Concomitant]
     Route: 042
     Dates: start: 20041202, end: 20041206
  23. MYCOPHENOLATE MOFETIL (CELLCEPT) [Suspect]
     Route: 048
     Dates: start: 20041202, end: 20041202
  24. MYCOPHENOLATE MOFETIL (CELLCEPT) [Suspect]
     Route: 048
     Dates: start: 20050117, end: 20050130
  25. TACROLIMUS [Suspect]
     Indication: PROPHYLAXIS AGAINST TRANSPLANT REJECTION
     Route: 048
     Dates: start: 20041211, end: 20051027
  26. PREDNISOLONE [Suspect]
     Indication: PROPHYLAXIS AGAINST TRANSPLANT REJECTION
     Route: 048
  27. MYCOPHENOLATE MOFETIL (CELLCEPT) [Suspect]
     Route: 048
     Dates: start: 20041213, end: 20050116
  28. MYCOPHENOLATE MOFETIL (CELLCEPT) [Suspect]
     Route: 048
     Dates: start: 20050131, end: 20050314
  29. MYCOPHENOLATE MOFETIL (CELLCEPT) [Suspect]
     Route: 048
     Dates: start: 20050713, end: 20050922
  30. MYCOPHENOLATE MOFETIL (CELLCEPT) [Suspect]
     Route: 048
     Dates: start: 20051121, end: 20051121
  31. CYCLOPHOSPHAMIDE [Suspect]
     Indication: PROPHYLAXIS AGAINST TRANSPLANT REJECTION
     Route: 042
  32. NEORAL [Concomitant]
     Route: 048
     Dates: start: 20051111, end: 20060423
  33. OMEPRAZOLE [Concomitant]
     Route: 048
     Dates: start: 20051201, end: 20051207
  34. MYCOPHENOLATE MOFETIL (CELLCEPT) [Suspect]
     Route: 048
     Dates: start: 20050315, end: 20050607
  35. PREDNISOLONE [Suspect]
     Route: 048
     Dates: start: 20051001, end: 20060308
  36. MABTHERA [Suspect]
     Indication: PROPHYLAXIS AGAINST TRANSPLANT REJECTION
     Route: 042
     Dates: start: 20051005, end: 20051208
  37. SULBACTAM SODIUM [Concomitant]
     Route: 042
     Dates: start: 20041201, end: 20041210
  38. FAMOTIDINE [Concomitant]
     Route: 042
     Dates: start: 20041201, end: 20041215
  39. DILTIAZEM HCL [Concomitant]
     Route: 048
     Dates: start: 20041216, end: 20050203
  40. MYCOPHENOLATE MOFETIL (CELLCEPT) [Suspect]
     Route: 048
     Dates: start: 20051102, end: 20051102
  41. PREDNISOLONE [Suspect]
     Route: 048
     Dates: start: 20060418, end: 20060423
  42. SOLU-MEDROL [Concomitant]
     Route: 042
     Dates: start: 20041201, end: 20041210
  43. DILTIAZEM HCL [Concomitant]
     Route: 042
     Dates: start: 20041206, end: 20041210
  44. FAMOTIDINE [Concomitant]
     Route: 048
     Dates: start: 20041216, end: 20060423

REACTIONS (9)
  - EPSTEIN-BARR VIRAEMIA [None]
  - TREMOR [None]
  - HYPERBILIRUBINAEMIA [None]
  - EPSTEIN-BARR VIRUS ASSOCIATED LYMPHOPROLIFERATIVE DISORDER [None]
  - HYPERCHOLESTEROLAEMIA [None]
  - PNEUMATOSIS INTESTINALIS [None]
  - THROMBOTIC MICROANGIOPATHY [None]
  - HYPERTRIGLYCERIDAEMIA [None]
  - CYTOMEGALOVIRUS VIRAEMIA [None]
